FAERS Safety Report 8337721-4 (Version None)
Quarter: 2012Q2

REPORT INFORMATION
  Report Type: 
  Country: None (occurrence: None)
  Receive Date: 20120504
  Receipt Date: 20120427
  Transmission Date: 20120825
  Serious: Yes (Hospitalization)
  Sender: FDA-Public Use
  Company Number: US-B.I. PHARMACEUTICALS,INC./RIDGEFIELD-2012-BP-05965BP

PATIENT
  Sex: Female

DRUGS (11)
  1. LISINOPRIL [Concomitant]
     Indication: HYPERTENSION
     Dosage: 5 MG
     Route: 048
  2. SERTRALINE HYDROCHLORIDE [Concomitant]
     Dosage: 75 MG
     Route: 048
  3. IRON [Concomitant]
     Route: 048
  4. ALLOPURINOL [Concomitant]
     Indication: HYPERTENSION
     Route: 048
  5. TORSEMIDE [Concomitant]
     Dosage: 40 MG
     Route: 048
  6. DIGOXIN [Concomitant]
     Dosage: 0.125 MG
     Route: 048
  7. KLOR-CON [Concomitant]
     Dosage: 20 MG
     Route: 048
  8. CARVEDILOL [Concomitant]
     Dosage: 50 MG
     Route: 048
  9. ARICEPT [Concomitant]
     Indication: DEMENTIA
     Dosage: 23 MG
     Route: 048
     Dates: start: 20120317
  10. DILTIAZEM [Concomitant]
     Indication: ATRIAL FIBRILLATION
     Dosage: 180 MG
     Route: 048
  11. PRADAXA [Suspect]
     Indication: ATRIAL FIBRILLATION
     Dosage: 150 MG
     Route: 048
     Dates: start: 20101001

REACTIONS (8)
  - PAIN [None]
  - HYPOTENSION [None]
  - HEART RATE IRREGULAR [None]
  - ISCHAEMIC STROKE [None]
  - DYSPHAGIA [None]
  - FEEDING TUBE COMPLICATION [None]
  - UNRESPONSIVE TO STIMULI [None]
  - VIITH NERVE PARALYSIS [None]
